FAERS Safety Report 22379886 (Version 1)
Quarter: 2023Q2

REPORT INFORMATION
  Report Type: Spontaneous
  Country: US (occurrence: US)
  Receive Date: 20230529
  Receipt Date: 20230529
  Transmission Date: 20230721
  Serious: No
  Sender: FDA-Public Use
  Company Number: US-TEVA-2023-US-2887519

PATIENT
  Age: 85 Year
  Sex: Female

DRUGS (4)
  1. CLONIDINE HYDROCHLORIDE [Suspect]
     Active Substance: CLONIDINE HYDROCHLORIDE
     Indication: Product used for unknown indication
     Dosage: 0.2MG/24HR
     Route: 062
  2. CLONIDINE HYDROCHLORIDE [Suspect]
     Active Substance: CLONIDINE HYDROCHLORIDE
     Dosage: 0.3 MG/24HR
     Route: 062
  3. PREDNISONE [Suspect]
     Active Substance: PREDNISONE
     Indication: Allergy prophylaxis
     Route: 065
  4. MODERNA COVID-19 VACCINE [Suspect]
     Active Substance: ELASOMERAN
     Indication: Product used for unknown indication
     Route: 065
     Dates: start: 202101

REACTIONS (9)
  - Malaise [Unknown]
  - Feeling abnormal [Unknown]
  - Blood sodium decreased [Unknown]
  - Brain fog [Recovered/Resolved]
  - Ocular discomfort [Unknown]
  - Cognitive disorder [Unknown]
  - Urticaria [Unknown]
  - Lip swelling [Unknown]
  - Product storage error [Unknown]
